FAERS Safety Report 12917175 (Version 1)
Quarter: 2016Q4

REPORT INFORMATION
  Report Type: Spontaneous
  Country: DE (occurrence: DE)
  Receive Date: 20161107
  Receipt Date: 20161107
  Transmission Date: 20170207
  Serious: Yes (Other)
  Sender: FDA-Public Use
  Company Number: DE-SHIRE-DE201616082

PATIENT
  Sex: Male
  Weight: 23 kg

DRUGS (2)
  1. INTUNIV [Suspect]
     Active Substance: GUANFACINE HYDROCHLORIDE
     Indication: PRODUCT USED FOR UNKNOWN INDICATION
     Dosage: 0.5 MG, UNKNOWN
     Route: 048
     Dates: end: 20161025
  2. INTUNIV [Suspect]
     Active Substance: GUANFACINE HYDROCHLORIDE
     Dosage: 1 MG, UNKNOWN
     Route: 048
     Dates: start: 20161025

REACTIONS (8)
  - Restlessness [Unknown]
  - Fatigue [Unknown]
  - Loss of control of legs [Unknown]
  - Disturbance in attention [Unknown]
  - Disturbance in social behaviour [Unknown]
  - Wrong technique in product usage process [Recovered/Resolved]
  - Headache [Unknown]
  - Enuresis [Unknown]

NARRATIVE: CASE EVENT DATE: 201610
